FAERS Safety Report 9652792 (Version 1)
Quarter: 2013Q4

REPORT INFORMATION
  Report Type: Spontaneous
  Country: US (occurrence: US)
  Receive Date: 20131029
  Receipt Date: 20131029
  Transmission Date: 20140711
  Serious: No
  Sender: FDA-Public Use
  Company Number: US-BIOGENIDEC-2013BI077399

PATIENT
  Age: 60 Year
  Sex: Female

DRUGS (19)
  1. TECFIDERA [Suspect]
     Indication: MULTIPLE SCLEROSIS
     Route: 048
     Dates: start: 20130711
  2. DIAZEPAM [Concomitant]
  3. PRILOSEC [Concomitant]
  4. SULFAMETHOXAZOLE - TMP DS [Concomitant]
  5. CARISOPRODOL [Concomitant]
  6. MULTIPLE VITAMIN [Concomitant]
  7. FISH OIL [Concomitant]
  8. B12 [Concomitant]
  9. HYDROXYZINE HCL [Concomitant]
  10. ZONISAMIDE [Concomitant]
  11. CRESTOR [Concomitant]
  12. PROMETHAZINE HCL [Concomitant]
  13. LYRICA [Concomitant]
  14. MEXLIZINE HCL [Concomitant]
  15. BUFFERED ASPIRIN [Concomitant]
  16. EDARBYCLOR [Concomitant]
  17. NITROLINGUAL PUMP SPRAY [Concomitant]
  18. PLAVIX [Concomitant]
  19. DILTIAZEM CD [Concomitant]

REACTIONS (1)
  - Food poisoning [Unknown]
